FAERS Safety Report 4422189-0 (Version None)
Quarter: 2004Q3

REPORT INFORMATION
  Report Type: 
  Country: None (occurrence: None)
  Receive Date: 20040810
  Receipt Date: 20040802
  Transmission Date: 20050211
  Serious: Yes (Hospitalization)
  Sender: FDA-Public Use
  Company Number: PHEH2004US08354

PATIENT
  Age: 75 Year
  Sex: Female

DRUGS (6)
  1. EXELON [Suspect]
     Indication: DEMENTIA ALZHEIMER'S TYPE
  2. NAMENDA [Suspect]
     Indication: DEMENTIA ALZHEIMER'S TYPE
     Dosage: 5 MG, QD
     Dates: start: 20040401, end: 20040401
  3. NAMENDA [Suspect]
     Dosage: 5 MG, BID
     Dates: start: 20040401, end: 20040419
  4. IRON [Suspect]
     Indication: PERNICIOUS ANAEMIA
  5. ANTIHYPERTENSIVES [Suspect]
     Indication: HYPERTENSION
  6. VITAMIN B-12 [Concomitant]

REACTIONS (8)
  - ABDOMINAL PAIN [None]
  - CHOLELITHIASIS [None]
  - DIARRHOEA [None]
  - ERUCTATION [None]
  - GALLBLADDER OPERATION [None]
  - HEADACHE [None]
  - NAUSEA [None]
  - VOMITING [None]
